FAERS Safety Report 19784440 (Version 2)
Quarter: 2022Q2

REPORT INFORMATION
  Report Type: Report from Study
  Country: BR (occurrence: BR)
  Receive Date: 20210903
  Receipt Date: 20220421
  Transmission Date: 20220720
  Serious: Yes (Other)
  Sender: FDA-Public Use
  Company Number: BR-JNJFOC-20210856654

PATIENT
  Age: 40 Year
  Sex: Female
  Weight: 60 kg

DRUGS (2)
  1. INFLIXIMAB [Suspect]
     Active Substance: INFLIXIMAB
     Indication: Colitis ulcerative
     Dosage: 13-MAY-2013 OR 2014
     Route: 042
  2. REMICADE [Suspect]
     Active Substance: INFLIXIMAB
     Indication: Colitis ulcerative
     Dosage: AMPOULE-VIAL 100MG
     Route: 042
     Dates: start: 2014

REACTIONS (4)
  - Systemic lupus erythematosus [Unknown]
  - Colitis ulcerative [Unknown]
  - Infusion related reaction [Recovered/Resolved]
  - Hypersensitivity [Unknown]

NARRATIVE: CASE EVENT DATE: 20210101
